FAERS Safety Report 20885073 (Version 4)
Quarter: 2023Q1

REPORT INFORMATION
  Report Type: Spontaneous
  Country: CA (occurrence: CA)
  Receive Date: 20220527
  Receipt Date: 20230223
  Transmission Date: 20230418
  Serious: Yes (Other)
  Sender: FDA-Public Use
  Company Number: CA-PFIZER INC-202101340777

PATIENT
  Age: 23 Year
  Sex: Female

DRUGS (1)
  1. RUXIENCE [Suspect]
     Active Substance: RITUXIMAB-PVVR
     Indication: Lupus nephritis
     Dosage: 1000 MG DAY 1 AND DAY 15
     Route: 042
     Dates: start: 20211104, end: 20211119

REACTIONS (2)
  - Osteonecrosis [Unknown]
  - Off label use [Unknown]
